FAERS Safety Report 12404894 (Version 2)
Quarter: 2016Q4

REPORT INFORMATION
  Report Type: Report from Study
  Country: US (occurrence: US)
  Receive Date: 20160525
  Receipt Date: 20161228
  Transmission Date: 20170207
  Serious: Yes (Death, Hospitalization, Other)
  Sender: FDA-Public Use
  Company Number: US-GILEAD-2016-0211718

PATIENT
  Age: 70 Year
  Sex: Female
  Weight: 64.85 kg

DRUGS (27)
  1. SPIRONOLACTONE. [Concomitant]
     Active Substance: SPIRONOLACTONE
  2. CYMBALTA [Concomitant]
     Active Substance: DULOXETINE HYDROCHLORIDE
  3. LYRICA [Concomitant]
     Active Substance: PREGABALIN
  4. MULTIVITAMIN                       /00097801/ [Concomitant]
     Active Substance: VITAMINS
  5. ADCIRCA [Concomitant]
     Active Substance: TADALAFIL
  6. DULOXETINE. [Concomitant]
     Active Substance: DULOXETINE
  7. NORCO [Concomitant]
     Active Substance: ACETAMINOPHEN\HYDROCODONE BITARTRATE
  8. LORAZEPAM. [Concomitant]
     Active Substance: LORAZEPAM
  9. MIRALAX [Concomitant]
     Active Substance: POLYETHYLENE GLYCOL 3350
  10. AMBRISENTAN [Suspect]
     Active Substance: AMBRISENTAN
     Indication: PRODUCT USED FOR UNKNOWN INDICATION
     Dosage: 5 MG, QD
     Route: 048
     Dates: start: 20150209
  11. FUROSEMIDE. [Concomitant]
     Active Substance: FUROSEMIDE
  12. CARVEDILOL. [Concomitant]
     Active Substance: CARVEDILOL
  13. MS CONTIN [Concomitant]
     Active Substance: MORPHINE SULFATE
  14. FISH OIL [Concomitant]
     Active Substance: FISH OIL
  15. FERROUS SULFATE. [Concomitant]
     Active Substance: FERROUS SULFATE
  16. PREVACID [Concomitant]
     Active Substance: LANSOPRAZOLE
  17. TYLENOL [Concomitant]
     Active Substance: ACETAMINOPHEN
  18. CALCIUM CARBONATE. [Concomitant]
     Active Substance: CALCIUM CARBONATE
  19. RESTASIS [Concomitant]
     Active Substance: CYCLOSPORINE
  20. DIGOXIN. [Concomitant]
     Active Substance: DIGOXIN
  21. AMBRISENTAN [Suspect]
     Active Substance: AMBRISENTAN
     Dosage: 10 MG, UNK
     Route: 048
  22. ASPIRIN 81 [Concomitant]
     Active Substance: ASPIRIN
  23. OXYGEN. [Concomitant]
     Active Substance: OXYGEN
  24. XARELTO [Concomitant]
     Active Substance: RIVAROXABAN
  25. VITAMIN C [Concomitant]
     Active Substance: ASCORBIC ACID
  26. VITAMIN D3 [Concomitant]
     Active Substance: CHOLECALCIFEROL
  27. TADALAFIL [Concomitant]
     Active Substance: TADALAFIL

REACTIONS (5)
  - Generalised oedema [Recovered/Resolved]
  - Death [Fatal]
  - Dyspnoea [Recovered/Resolved]
  - Acute respiratory failure [Recovered/Resolved]
  - Fluid retention [Unknown]

NARRATIVE: CASE EVENT DATE: 20160418
